FAERS Safety Report 6274262-2 (Version None)
Quarter: 2009Q3

REPORT INFORMATION
  Report Type: 
  Country: None (occurrence: None)
  Receive Date: 20090720
  Receipt Date: 20090710
  Transmission Date: 20100115
  Serious: Yes (Other)
  Sender: FDA-Public Use
  Company Number: US-PFIZER INC-2009207128

PATIENT
  Sex: Female

DRUGS (2)
  1. CELEBREX [Suspect]
     Indication: BACK PAIN
     Dosage: 200 MG, 1X/DAY
     Route: 048
     Dates: start: 20080804
  2. CELEBREX [Suspect]
     Indication: PAIN

REACTIONS (5)
  - BACK PAIN [None]
  - DRUG INEFFECTIVE [None]
  - GLAUCOMA [None]
  - MACULAR DEGENERATION [None]
  - PAIN [None]
